FAERS Safety Report 13147596 (Version 10)
Quarter: 2018Q3

REPORT INFORMATION
  Report Type: Report from Study
  Country: None (occurrence: US)
  Receive Date: 20170125
  Receipt Date: 20180919
  Transmission Date: 20181010
  Serious: Yes (Hospitalization, Other)
  Sender: FDA-Public Use
  Company Number: US-ABBVIE-16K-163-1806944-00

PATIENT
  Age: 62 Year
  Sex: Female

DRUGS (6)
  1. PREDNISONE. [Suspect]
     Active Substance: PREDNISONE
     Indication: COLITIS ULCERATIVE
     Route: 065
     Dates: end: 201705
  2. PREDNISONE. [Suspect]
     Active Substance: PREDNISONE
     Indication: PYODERMA GANGRENOSUM
  3. RITALIN [Suspect]
     Active Substance: METHYLPHENIDATE HYDROCHLORIDE
     Indication: PRODUCT USED FOR UNKNOWN INDICATION
     Route: 065
  4. VITAMIN D3 [Concomitant]
     Active Substance: CHOLECALCIFEROL
     Indication: PRODUCT USED FOR UNKNOWN INDICATION
  5. HUMIRA [Suspect]
     Active Substance: ADALIMUMAB
     Indication: COLITIS ULCERATIVE
     Route: 058
     Dates: start: 20161009, end: 201707
  6. HUMIRA [Suspect]
     Active Substance: ADALIMUMAB
     Route: 058

REACTIONS (27)
  - Suicidal ideation [Recovered/Resolved]
  - Wound secretion [Recovering/Resolving]
  - Pain in extremity [Not Recovered/Not Resolved]
  - Headache [Not Recovered/Not Resolved]
  - Colitis ulcerative [Recovering/Resolving]
  - Head titubation [Recovered/Resolved]
  - Scar [Unknown]
  - Peripheral swelling [Recovering/Resolving]
  - Tremor [Unknown]
  - Dyspepsia [Recovered/Resolved]
  - Dyspepsia [Recovering/Resolving]
  - Joint stiffness [Unknown]
  - Depression [Unknown]
  - Wound [Recovering/Resolving]
  - Head titubation [Not Recovered/Not Resolved]
  - Head titubation [Unknown]
  - Throat irritation [Recovered/Resolved]
  - Dyspepsia [Unknown]
  - Arthralgia [Not Recovered/Not Resolved]
  - Nasopharyngitis [Not Recovered/Not Resolved]
  - Suicidal ideation [Recovered/Resolved]
  - Blood potassium decreased [Unknown]
  - Throat irritation [Unknown]
  - Suicidal ideation [Unknown]
  - Crying [Not Recovered/Not Resolved]
  - Confusional state [Unknown]
  - Musculoskeletal pain [Not Recovered/Not Resolved]

NARRATIVE: CASE EVENT DATE: 2015
